FAERS Safety Report 6490749-1 (Version None)
Quarter: 2009Q4

REPORT INFORMATION
  Report Type: 
  Country: None (occurrence: None)
  Receive Date: 20091124
  Receipt Date: 20090602
  Transmission Date: 20100525
  Serious: Yes (Other)
  Sender: FDA-Public Use
  Company Number: 282157

PATIENT
  Sex: Female

DRUGS (3)
  1. HERCEPTIN [Suspect]
     Indication: BREAST CANCER METASTATIC
     Dosage: UNK, INTRAVENOUS
     Route: 042
     Dates: start: 20080201
  2. CARBOPLATIN [Suspect]
     Indication: BREAST CANCER METASTATIC
  3. CHEMOTHERAPY TREATMENTS NOS (ANTINEOPLASTIC AGENT NOS) [Concomitant]

REACTIONS (4)
  - EPISTAXIS [None]
  - INFECTION [None]
  - NAIL DISORDER [None]
  - SKIN DISORDER [None]
